FAERS Safety Report 6576418-8 (Version None)
Quarter: 2010Q1

REPORT INFORMATION
  Report Type: 
  Country: None (occurrence: None)
  Receive Date: 20100210
  Receipt Date: 20100202
  Transmission Date: 20100710
  Serious: Yes (Death, Other)
  Sender: FDA-Public Use
  Company Number: JP-JNJFOC-20100204280

PATIENT
  Sex: Male

DRUGS (5)
  1. TOPINA [Suspect]
     Indication: EPILEPSY
     Route: 048
  2. ALEVIATIN [Concomitant]
     Indication: EPILEPSY
     Route: 048
  3. RINDERON [Concomitant]
     Indication: BRAIN NEOPLASM
     Route: 048
  4. TAKEPRON [Concomitant]
     Route: 048
  5. MAGLAX [Concomitant]
     Route: 048

REACTIONS (3)
  - BODY TEMPERATURE INCREASED [None]
  - BRAIN NEOPLASM [None]
  - WHITE BLOOD CELL COUNT INCREASED [None]
